FAERS Safety Report 7264509-8 (Version None)
Quarter: 2011Q1

REPORT INFORMATION
  Report Type: 
  Country: None (occurrence: None)
  Receive Date: 20110131
  Receipt Date: 20110126
  Transmission Date: 20110831
  Serious: No
  Sender: FDA-Public Use
  Company Number: US-PFIZER INC-2011018998

PATIENT
  Sex: Female

DRUGS (6)
  1. LIPITOR [Suspect]
     Indication: HYPERTENSION
     Dosage: 20 MG, 2X/DAY
  2. ACETAMINOPHEN [Concomitant]
     Dosage: UNK
  3. LIPITOR [Suspect]
     Indication: BLOOD CHOLESTEROL INCREASED
     Dosage: 40 MG, DAILY
     Route: 048
  4. PENICILLIN NOS [Suspect]
  5. LOSARTAN POTASSIUM AND HYDROCHLOROTHIAZIDE [Concomitant]
     Dosage: 50/12.5 MG
  6. METOPROLOL [Concomitant]
     Dosage: UNK, 2X/DAY

REACTIONS (2)
  - FOREIGN BODY [None]
  - SINUSITIS [None]
